FAERS Safety Report 13607743 (Version 1)
Quarter: 2017Q2

REPORT INFORMATION
  Report Type: Spontaneous
  Country: HK (occurrence: HK)
  Receive Date: 20170602
  Receipt Date: 20170602
  Transmission Date: 20170830
  Serious: Yes (Death, Other)
  Sender: FDA-Public Use
  Company Number: HK-009507513-1705HKG014407

PATIENT

DRUGS (1)
  1. KEYTRUDA [Suspect]
     Active Substance: PEMBROLIZUMAB
     Indication: HEAD AND NECK CANCER
     Dosage: UNK, CYCLICAL

REACTIONS (4)
  - Cholecystitis acute [Unknown]
  - Death [Fatal]
  - General physical health deterioration [Unknown]
  - Off label use [Unknown]
